FAERS Safety Report 15537221 (Version 2)
Quarter: 2019Q3

REPORT INFORMATION
  Report Type: Spontaneous
  Country: DE (occurrence: DE)
  Receive Date: 20181022
  Receipt Date: 20190712
  Transmission Date: 20191004
  Serious: Yes (Hospitalization, Other)
  Sender: FDA-Public Use
  Company Number: PHHY2018DE129559

PATIENT
  Age: 56 Year
  Sex: Male
  Weight: 125 kg

DRUGS (4)
  1. TRIMIPRAMINE [Suspect]
     Active Substance: TRIMIPRAMINE
     Indication: SLEEP DISORDER
     Dosage: 40 GTT, (1 TOTAL)
     Route: 065
     Dates: start: 20160613
  2. QUETIAPINE ? 1 A PHARMA [Suspect]
     Active Substance: QUETIAPINE
     Indication: SLEEP DISORDER
     Dosage: 25 MG, UNK
     Route: 048
  3. PIPAMPERONE [Suspect]
     Active Substance: PIPAMPERONE
     Indication: SLEEP DISORDER
     Dosage: 40 MG, UNK
     Route: 048
  4. MIRTAZAPINE. [Suspect]
     Active Substance: MIRTAZAPINE
     Indication: SLEEP DISORDER
     Dosage: 30 MG, UNK
     Route: 048

REACTIONS (14)
  - Temperature regulation disorder [Unknown]
  - Sleep apnoea syndrome [Unknown]
  - Mood altered [Unknown]
  - Weight increased [Unknown]
  - Fatigue [Not Recovered/Not Resolved]
  - Binge eating [Not Recovered/Not Resolved]
  - Constipation [Unknown]
  - Respiratory disorder [Unknown]
  - Middle insomnia [Unknown]
  - Initial insomnia [Unknown]
  - Insomnia [Not Recovered/Not Resolved]
  - Dependence [Unknown]
  - Apathy [Unknown]
  - Sleep disorder [Not Recovered/Not Resolved]

NARRATIVE: CASE EVENT DATE: 20160613
